FAERS Safety Report 12827178 (Version 1)
Quarter: 2016Q4

REPORT INFORMATION
  Report Type: Spontaneous
  Country: US (occurrence: US)
  Receive Date: 20161007
  Receipt Date: 20161007
  Transmission Date: 20170207
  Serious: No
  Sender: FDA-Public Use
  Company Number: US-INDIVIOR LIMITED-INDV-086686-2015

PATIENT
  Age: 60 Year
  Sex: Male

DRUGS (3)
  1. SUBOXONE [Suspect]
     Active Substance: BUPRENORPHINE HYDROCHLORIDE\NALOXONE HYDROCHLORIDE
     Dosage: 8 MG, QD, ABOUT 2 WEEKS
     Route: 060
     Dates: start: 201512, end: 20151222
  2. SUBOXONE [Suspect]
     Active Substance: BUPRENORPHINE HYDROCHLORIDE\NALOXONE HYDROCHLORIDE
     Indication: DRUG DEPENDENCE
     Dosage: 8 MG, BID, ABOUT 2 YEARS
     Route: 060
     Dates: start: 2013, end: 201512
  3. SUBOXONE [Suspect]
     Active Substance: BUPRENORPHINE HYDROCHLORIDE\NALOXONE HYDROCHLORIDE
     Dosage: 8 MG, ONCE
     Route: 060
     Dates: start: 20151227, end: 20151227

REACTIONS (7)
  - Feeling abnormal [Not Recovered/Not Resolved]
  - Therapy cessation [Recovered/Resolved]
  - Substance abuse [Recovered/Resolved]
  - Intentional underdose [Recovered/Resolved]
  - Chills [Not Recovered/Not Resolved]
  - Drug withdrawal syndrome [Not Recovered/Not Resolved]
  - Product use issue [Recovered/Resolved]

NARRATIVE: CASE EVENT DATE: 2013
